FAERS Safety Report 7078443-X (Version None)
Quarter: 2010Q4

REPORT INFORMATION
  Report Type: 
  Country: None (occurrence: None)
  Receive Date: 20101102
  Receipt Date: 20101020
  Transmission Date: 20110411
  Serious: Yes (Hospitalization)
  Sender: FDA-Public Use
  Company Number: FI-CELGENEUS-055-20785-10102023

PATIENT
  Age: 72 Year
  Sex: Female

DRUGS (3)
  1. THALIDOMIDE [Suspect]
     Route: 048
     Dates: start: 20051001, end: 20080601
  2. THALIDOMIDE [Suspect]
     Route: 048
     Dates: start: 20091101
  3. THALIDOMIDE [Suspect]
     Route: 048
     Dates: start: 20100601, end: 20101001

REACTIONS (1)
  - BUNDLE BRANCH BLOCK LEFT [None]
